FAERS Safety Report 16891443 (Version 1)
Quarter: 2019Q4

REPORT INFORMATION
  Report Type: Spontaneous
  Country: US (occurrence: US)
  Receive Date: 20190812
  Receipt Date: 20190812
  Transmission Date: 20200122
  Serious: Yes (Hospitalization)
  Sender: FDA-Public Use
  Company Number: None

PATIENT
  Age: 19 Year
  Sex: Female
  Weight: 69.2 kg

DRUGS (6)
  1. DEXAMETHASONE. [Suspect]
     Active Substance: DEXAMETHASONE
     Dates: end: 20190710
  2. METHOTREXATE. [Suspect]
     Active Substance: METHOTREXATE
     Dates: end: 20190621
  3. MITOXANTRONE HYDROCHLORIDE. [Suspect]
     Active Substance: MITOXANTRONE HYDROCHLORIDE
     Dates: end: 20190615
  4. ONCASPAR [Suspect]
     Active Substance: PEGASPARGASE
     Dates: end: 20190703
  5. VINCRISTINE SULFATE. [Suspect]
     Active Substance: VINCRISTINE SULFATE
     Dates: end: 20190706
  6. VORICONAZOLE. [Concomitant]
     Active Substance: VORICONAZOLE

REACTIONS (21)
  - Pulmonary mass [None]
  - Coagulopathy [None]
  - Drug hypersensitivity [None]
  - Renal impairment [None]
  - Systemic candida [None]
  - Hepatic encephalopathy [None]
  - Depressed level of consciousness [None]
  - Tachypnoea [None]
  - Toxicity to various agents [None]
  - Subdural haematoma [None]
  - Hepatic failure [None]
  - Weight increased [None]
  - Splenic candidiasis [None]
  - Delirium [None]
  - Tachycardia [None]
  - Colitis [None]
  - Pyrexia [None]
  - Neutropenic sepsis [None]
  - Enteritis [None]
  - Fluid retention [None]
  - Therapy cessation [None]

NARRATIVE: CASE EVENT DATE: 20190804
